FAERS Safety Report 7132716-0 (Version None)
Quarter: 2010Q4

REPORT INFORMATION
  Report Type: 
  Country: None (occurrence: None)
  Receive Date: 20101202
  Receipt Date: 20101125
  Transmission Date: 20110411
  Serious: Yes (Disabling)
  Sender: FDA-Public Use
  Company Number: DK-B.I. PHARMACEUTICALS,INC./RIDGEFIELD-2010-SW-00370DB

PATIENT
  Sex: Female
  Weight: 38 kg

DRUGS (6)
  1. SPIRIVA [Suspect]
     Indication: CHRONIC OBSTRUCTIVE PULMONARY DISEASE
     Dosage: 1 ANZ
     Route: 055
     Dates: start: 20080701, end: 20100801
  2. SERETIDE [Suspect]
     Indication: CHRONIC OBSTRUCTIVE PULMONARY DISEASE
     Dosage: 1 ANZ
     Route: 055
     Dates: start: 20080701, end: 20100801
  3. KALEORID [Concomitant]
     Dosage: 750 MG
     Route: 048
  4. COVERSYL NOVUM [Concomitant]
     Dosage: 2.5 MG
     Route: 048
  5. ESTRADIOL [Concomitant]
     Dosage: 2 MG
  6. ELTROXIN [Concomitant]
     Dosage: 100 MG
     Route: 048

REACTIONS (5)
  - BLISTER [None]
  - DRUG INTERACTION [None]
  - MUSCLE SPASMS [None]
  - ONYCHOMADESIS [None]
  - ULCER [None]
